FAERS Safety Report 17041419 (Version 1)
Quarter: 2019Q4

REPORT INFORMATION
  Report Type: Spontaneous
  Country: SG (occurrence: SG)
  Receive Date: 20191118
  Receipt Date: 20191118
  Transmission Date: 20200122
  Serious: Yes (Life-Threatening, Hospitalization)
  Sender: FDA-Public Use
  Company Number: SG-TEVA-2019-SG-1138483

PATIENT
  Age: 44 Year
  Sex: Male

DRUGS (7)
  1. PROPRANOLOL [Suspect]
     Active Substance: PROPRANOLOL HYDROCHLORIDE
     Indication: THYROTOXIC CRISIS
     Route: 048
  2. ADRENALINE [Suspect]
     Active Substance: EPINEPHRINE
     Indication: CIRCULATORY COLLAPSE
     Route: 050
  3. NORADRENALINE [Suspect]
     Active Substance: NOREPINEPHRINE
     Indication: CIRCULATORY COLLAPSE
     Route: 050
  4. DIGOXIN. [Concomitant]
     Active Substance: DIGOXIN
     Indication: ATRIAL FIBRILLATION
     Route: 041
  5. DIGOXIN. [Concomitant]
     Active Substance: DIGOXIN
     Indication: CARDIAC FAILURE CONGESTIVE
  6. CARBIMAZOLE [Concomitant]
     Active Substance: CARBIMAZOLE
     Indication: THYROTOXIC CRISIS
     Route: 065
  7. LUGOL [Concomitant]
     Active Substance: IODINE\POTASSIUM IODIDE
     Dosage: (130 MG/ML) TEN DROPS
     Route: 065

REACTIONS (7)
  - Hyperammonaemia [Recovered/Resolved]
  - Drug ineffective [Unknown]
  - Hepatic failure [Recovering/Resolving]
  - Pulseless electrical activity [Recovering/Resolving]
  - Circulatory collapse [Recovering/Resolving]
  - Renal failure [Recovering/Resolving]
  - Mental disorder [Recovering/Resolving]
